FAERS Safety Report 17216308 (Version 1)
Quarter: 2019Q4

REPORT INFORMATION
  Report Type: Spontaneous
  Country: BE (occurrence: BE)
  Receive Date: 20191230
  Receipt Date: 20191230
  Transmission Date: 20200122
  Serious: Yes (Hospitalization)
  Sender: FDA-Public Use
  Company Number: BE-CELGENEUS-BEL-20181007264

PATIENT
  Age: 69 Year
  Sex: Female

DRUGS (45)
  1. FOLAVIT [Concomitant]
     Active Substance: FOLIC ACID
     Indication: FOLATE DEFICIENCY
     Dosage: 4 MILLIGRAM
     Route: 048
     Dates: start: 201803
  2. OMEPRAZOLE. [Concomitant]
     Active Substance: OMEPRAZOLE
     Indication: PROPHYLAXIS AGAINST GASTROINTESTINAL ULCER
     Dosage: 20 MILLIGRAM
     Route: 048
     Dates: start: 20180629, end: 20181106
  3. CALCIBONE D3 [Concomitant]
     Indication: HYPOCALCAEMIA
     Dosage: 1000/880 MG
     Route: 048
     Dates: start: 20181011, end: 20181025
  4. VENETOCLAX. [Concomitant]
     Active Substance: VENETOCLAX
     Dosage: 200 MILLIGRAM
     Route: 048
     Dates: start: 20180411, end: 20180411
  5. ULTRA MAGNESIUM [Concomitant]
     Indication: HYPOMAGNESAEMIA
     Dosage: 3 MILLIGRAM
     Route: 048
     Dates: start: 20180426
  6. ZALVOR [Concomitant]
     Indication: ACARODERMATITIS
     Dosage: 1 APPLICATOR FULL
     Route: 061
     Dates: start: 20180921, end: 20180921
  7. ZALVOR [Concomitant]
     Indication: LIMB INJURY
     Dosage: 1 APPLICATOR FULL
     Route: 061
     Dates: start: 20181013, end: 20181016
  8. ULTRA-K [Concomitant]
     Indication: HYPOKALAEMIA
     Dosage: 20 MILLIEQUIVALENTS
     Route: 041
     Dates: start: 20181012, end: 20181012
  9. AZACITIDINE INJECTABLE [Suspect]
     Active Substance: AZACITIDINE
     Indication: ACUTE MYELOID LEUKAEMIA
     Dosage: 75 MILLIGRAM/SQ. METER
     Route: 058
     Dates: start: 20180410, end: 20180923
  10. VENETOCLAX. [Concomitant]
     Active Substance: VENETOCLAX
     Dosage: 400 MILLIGRAM
     Route: 048
     Dates: start: 20191105
  11. ALLOPURINOL. [Concomitant]
     Active Substance: ALLOPURINOL
     Dosage: 300 MILLIGRAM
     Route: 048
     Dates: start: 20180718, end: 20181019
  12. AMLODIPINE [Concomitant]
     Active Substance: AMLODIPINE BESYLATE
     Indication: ATRIAL FIBRILLATION
     Dosage: 10 MILLIGRAM
     Route: 048
     Dates: start: 20180403, end: 20181010
  13. ZOFRAN [Concomitant]
     Active Substance: ONDANSETRON HYDROCHLORIDE
     Indication: PROPHYLAXIS OF NAUSEA AND VOMITING
     Route: 048
     Dates: start: 20180410
  14. TEVAGRASTIM [Concomitant]
     Active Substance: FILGRASTIM
     Indication: NEUTROPENIA
     Dosage: 48 INTERNATIONAL UNITS MILLIONS
     Route: 058
     Dates: start: 20180426, end: 20181026
  15. VENETOCLAX. [Concomitant]
     Active Substance: VENETOCLAX
     Indication: ACUTE MYELOID LEUKAEMIA
     Dosage: 100 MILLIGRAM
     Route: 048
     Dates: start: 20180410, end: 20180410
  16. VENETOCLAX. [Concomitant]
     Active Substance: VENETOCLAX
     Dosage: 400 MILLIGRAM
     Route: 048
     Dates: start: 20180412, end: 20181007
  17. LITICAN [Concomitant]
     Active Substance: ALIZAPRIDE HYDROCHLORIDE
     Indication: NAUSEA
     Route: 041
     Dates: start: 20180327
  18. D-CURE [Concomitant]
     Active Substance: CHOLECALCIFEROL
     Indication: PROPHYLAXIS
     Dosage: 2500 IU (INTERNATIONAL UNIT)
     Route: 048
     Dates: start: 20180328
  19. IMODIUM [Concomitant]
     Active Substance: LOPERAMIDE HYDROCHLORIDE
     Indication: DIARRHOEA
     Route: 048
     Dates: start: 20180330
  20. LISINOPRIL. [Concomitant]
     Active Substance: LISINOPRIL
     Indication: HYPERTENSION
     Dosage: 2.5 MILLIGRAM
     Route: 048
     Dates: start: 20180424, end: 20181010
  21. LISINOPRIL. [Concomitant]
     Active Substance: LISINOPRIL
     Dosage: 5 MILLIGRAM
     Route: 048
     Dates: start: 20181016
  22. POTASSIUM PERMANGANATE [Concomitant]
     Active Substance: POTASSIUM PERMANGANATE
     Indication: LIMB INJURY
     Dosage: 1 APPLICATOR FULL
     Route: 061
     Dates: start: 20181014, end: 20181015
  23. TEVAGRASTIM [Concomitant]
     Active Substance: FILGRASTIM
     Indication: PROPHYLAXIS
     Dosage: 48 INTERNATIONAL UNITS MILLIONS
     Route: 058
     Dates: start: 20181027, end: 20181105
  24. AUGMENTIN [Concomitant]
     Active Substance: AMOXICILLIN\CLAVULANATE POTASSIUM
     Indication: C-REACTIVE PROTEIN INCREASED
     Dosage: 8 GRAM
     Route: 048
     Dates: start: 20180910, end: 20180916
  25. AMUKIN [Concomitant]
     Active Substance: AMIKACIN SULFATE
     Indication: HYPOTENSION
     Route: 041
     Dates: start: 20181010, end: 20181010
  26. ACETIC ACID. [Concomitant]
     Active Substance: ACETIC ACID
     Indication: LIMB INJURY
     Dosage: 1 APPLICATOR FULL
     Route: 061
     Dates: start: 20181012, end: 20181017
  27. ACETIC ACID. [Concomitant]
     Active Substance: ACETIC ACID
     Indication: FEBRILE NEUTROPENIA
     Route: 065
  28. BACTRIM [Concomitant]
     Active Substance: SULFAMETHOXAZOLE\TRIMETHOPRIM
     Indication: ANTIBIOTIC PROPHYLAXIS
     Dosage: 800/160 MG
     Route: 048
     Dates: start: 20181012, end: 20181016
  29. AMLODIPINE [Concomitant]
     Active Substance: AMLODIPINE BESYLATE
     Dosage: 10 MILLIGRAM
     Route: 048
     Dates: start: 20181014
  30. FENISTIL [Concomitant]
     Active Substance: DIMETHINDENE
     Indication: PRURITUS
     Route: 048
     Dates: start: 20180329
  31. ALLOPURINOL. [Concomitant]
     Active Substance: ALLOPURINOL
     Indication: PROPHYLAXIS
     Dosage: 300 MILLIGRAM
     Route: 048
     Dates: start: 20180406, end: 20180618
  32. DECUSORB PASTE [Concomitant]
     Indication: LIMB INJURY
     Dosage: 1 APPLICATOR FULL
     Route: 061
     Dates: start: 20180705, end: 20181203
  33. DECUSORB PASTE [Concomitant]
     Dosage: 1 APPLICATOR FULL
     Route: 061
     Dates: start: 20180328, end: 20180515
  34. DENTIO [Concomitant]
     Indication: PROPHYLAXIS
     Dosage: 1 RINSING
     Route: 065
     Dates: start: 20180328
  35. ACICLOVIR [Concomitant]
     Active Substance: ACYCLOVIR
     Indication: ANTIVIRAL PROPHYLAXIS
     Dosage: 800 MILLIGRAM
     Route: 048
     Dates: start: 20180505
  36. TRADONAL ODIS [Concomitant]
     Indication: LIMB INJURY
     Route: 048
     Dates: start: 20180423
  37. AZACITIDINE INJECTABLE [Suspect]
     Active Substance: AZACITIDINE
     Route: 058
     Dates: start: 20181105
  38. MOVICOL [Concomitant]
     Active Substance: POLYETHYLENE GLYCOL 3350\POTASSIUM CHLORIDE\SODIUM BICARBONATE\SODIUM CHLORIDE
     Indication: CONSTIPATION
     Dosage: 1 SACHET
     Route: 048
     Dates: start: 20180327
  39. LASIX [Concomitant]
     Active Substance: FUROSEMIDE
     Indication: PROPHYLAXIS
     Dosage: 40 MILLIGRAM
     Route: 048
     Dates: start: 20180823, end: 20181013
  40. ISORBIDEDINITRATE CREAM [Concomitant]
     Indication: DECUBITUS ULCER
     Dosage: 1 APPLICATOR FULL
     Route: 061
     Dates: start: 20180610, end: 20181203
  41. BEFACT FORTE [Concomitant]
     Indication: VITAMIN SUPPLEMENTATION
     Dosage: 1 COMPRIME
     Route: 048
     Dates: start: 20180611
  42. ALOE VERA [Concomitant]
     Active Substance: ALOE VERA LEAF
     Indication: LIMB INJURY
     Dosage: 2 APPLICATOR FULL
     Route: 061
     Dates: start: 20180718
  43. XANAX [Concomitant]
     Active Substance: ALPRAZOLAM
     Indication: INSOMNIA
     Route: 048
     Dates: start: 20181014, end: 20181014
  44. FLUCONAZOLE. [Concomitant]
     Active Substance: FLUCONAZOLE
     Indication: ANTIFUNGAL PROPHYLAXIS
     Dosage: 200 MILLIGRAM
     Route: 048
     Dates: start: 20181012, end: 20181016
  45. TEVAGRASTIM [Concomitant]
     Active Substance: FILGRASTIM
     Dosage: 48 INTERNATIONAL UNITS MILLIONS
     Route: 058
     Dates: start: 20190106, end: 20190128

REACTIONS (1)
  - Wound infection [Recovered/Resolved]

NARRATIVE: CASE EVENT DATE: 20181010
